FAERS Safety Report 7480337-2 (Version None)
Quarter: 2011Q2

REPORT INFORMATION
  Report Type: 
  Country: None (occurrence: None)
  Receive Date: 20110504
  Receipt Date: 20110420
  Transmission Date: 20111010
  Serious: Yes (Other)
  Sender: FDA-Public Use
  Company Number: 20110331

PATIENT
  Sex: Female

DRUGS (1)
  1. DEXAMETHASONE SODIUM PHOSPHATE [Suspect]
     Indication: ENDODONTIC PROCEDURE
     Dosage: DENTAL
     Route: 004
     Dates: start: 20110303, end: 20110303

REACTIONS (6)
  - SWELLING FACE [None]
  - VISUAL IMPAIRMENT [None]
  - DYSARTHRIA [None]
  - TONGUE DISORDER [None]
  - INJECTION SITE PAIN [None]
  - VIITH NERVE PARALYSIS [None]
